FAERS Safety Report 6817881-4 (Version None)
Quarter: 2010Q3

REPORT INFORMATION
  Report Type: 
  Country: None (occurrence: None)
  Receive Date: 20100706
  Receipt Date: 20100625
  Transmission Date: 20110219
  Serious: Yes (Life-Threatening)
  Sender: FDA-Public Use
  Company Number: DE-WYE-G06303610

PATIENT
  Sex: Male
  Weight: 87 kg

DRUGS (2)
  1. BENEFIX [Suspect]
     Indication: TOOTH EXTRACTION
     Route: 042
     Dates: start: 20100622, end: 20100622
  2. BENEFIX [Suspect]
     Indication: FACTOR IX DEFICIENCY

REACTIONS (6)
  - BLOOD PRESSURE DECREASED [None]
  - COLD SWEAT [None]
  - HEART RATE DECREASED [None]
  - NAUSEA [None]
  - PALLOR [None]
  - VERTIGO [None]
